FAERS Safety Report 5263416-X (Version None)
Quarter: 2007Q1

REPORT INFORMATION
  Report Type: 
  Country: None (occurrence: None)
  Receive Date: 20070313
  Receipt Date: 20070305
  Transmission Date: 20070707
  Serious: Yes (Other)
  Sender: FDA-Public Use
  Company Number: 2007AC00348

PATIENT
  Age: 21 Year
  Sex: Female

DRUGS (2)
  1. SEROQUEL [Suspect]
     Indication: SCHIZOPHRENIA, UNDIFFERENTIATED TYPE
     Route: 048
     Dates: start: 20040510
  2. SEROQUEL [Suspect]
     Dosage: INCREASED TO 400 MG OVER 11 DAYS
     Route: 048
     Dates: end: 20040523

REACTIONS (1)
  - ERYTHEMA MULTIFORME [None]
